FAERS Safety Report 8443798-8 (Version None)
Quarter: 2012Q2

REPORT INFORMATION
  Report Type: 
  Country: None (occurrence: None)
  Receive Date: 20120323
  Receipt Date: 20110720
  Transmission Date: 20120825
  Serious: Yes (Hospitalization)
  Sender: FDA-Public Use
  Company Number: 163-21880-11052742

PATIENT
  Age: 68 Year
  Sex: Male

DRUGS (10)
  1. REVLIMID [Suspect]
     Indication: MULTIPLE MYELOMA
     Dosage: 15;25 MG, DAILY FOR 21 OUT OF 28 DAYS, PO
     Route: 048
     Dates: start: 20110602
  2. REVLIMID [Suspect]
     Indication: MULTIPLE MYELOMA
     Dosage: 15;25 MG, DAILY FOR 21 OUT OF 28 DAYS, PO
     Route: 048
     Dates: start: 20110315, end: 20110515
  3. LANTUS [Concomitant]
  4. DECADRON [Concomitant]
  5. ACYCLOVIR [Concomitant]
  6. COUMADIN [Concomitant]
  7. FUROSEMIDE [Concomitant]
  8. NOVOLOG [Concomitant]
  9. DIGOXIN [Concomitant]
  10. LANOXIN [Concomitant]

REACTIONS (1)
  - HYPOTENSION [None]
